FAERS Safety Report 7490862-6 (Version None)
Quarter: 2011Q2

REPORT INFORMATION
  Report Type: 
  Country: None (occurrence: None)
  Receive Date: 20110519
  Receipt Date: 20110510
  Transmission Date: 20111010
  Serious: Yes (Other)
  Sender: FDA-Public Use
  Company Number: CH-BAYER-2011-021830

PATIENT
  Age: 37 Year
  Sex: Female
  Weight: 68 kg

DRUGS (4)
  1. MIRENA [Suspect]
     Indication: PRODUCT USED FOR UNKNOWN INDICATION
     Dosage: UNK
     Route: 015
     Dates: start: 20031101, end: 20080919
  2. GESTODENE AND ETHINYL ESTRADIOL [Suspect]
     Dosage: UNK
     Dates: start: 20081201, end: 20100501
  3. DESOGESTREL AND ETHINYL ESTRADIOL [Concomitant]
     Dosage: UNK
     Dates: start: 20080919, end: 20081126
  4. GESTODENE AND ETHINYL ESTRADIOL [Suspect]
     Indication: PRODUCT USED FOR UNKNOWN INDICATION
     Dosage: UNK
     Dates: start: 20100501, end: 20110303

REACTIONS (3)
  - BREAST CANCER [None]
  - BREAST MASS [None]
  - BREAST CANCER FEMALE [None]
